FAERS Safety Report 11649589 (Version 1)
Quarter: 2015Q4

REPORT INFORMATION
  Report Type: Spontaneous
  Country: US (occurrence: US)
  Receive Date: 20151021
  Receipt Date: 20151021
  Transmission Date: 20160304
  Serious: No
  Sender: FDA-Public Use
  Company Number: US-BAYER-2015-448526

PATIENT
  Age: 87 Year
  Sex: Male
  Weight: 81.63 kg

DRUGS (1)
  1. OXYTROL FOR WOMEN [Suspect]
     Active Substance: OXYBUTYNIN
     Dosage: 1 DF, UNK
     Route: 061
     Dates: start: 201410

REACTIONS (1)
  - Product use issue [None]

NARRATIVE: CASE EVENT DATE: 201410
